FAERS Safety Report 5306457-6 (Version None)
Quarter: 2007Q2

REPORT INFORMATION
  Report Type: 
  Country: None (occurrence: None)
  Receive Date: 20070417
  Receipt Date: 20070401
  Transmission Date: 20071010
  Serious: Yes (Hospitalization)
  Sender: FDA-Public Use
  Company Number: S07-ISR-01602-01

PATIENT
  Age: 31 Year
  Sex: Female

DRUGS (6)
  1. ESCITALOPRAM OXALATE [Suspect]
     Indication: OBSESSIVE-COMPULSIVE DISORDER
     Dosage: 20 MG QD PO
     Route: 048
     Dates: start: 20070220, end: 20070327
  2. RISPERDAL [Concomitant]
  3. FLUPHENAZINE DECANOATE [Concomitant]
  4. DEKINET (BIPERIDEN HYDROCHLORIDE) [Concomitant]
  5. GLUCOPHAGE [Concomitant]
  6. DECAFIBRATE [Concomitant]

REACTIONS (3)
  - CONDITION AGGRAVATED [None]
  - DELUSION [None]
  - PSYCHOTIC DISORDER [None]
